FAERS Safety Report 8837238 (Version 1)
Quarter: 2012Q4

REPORT INFORMATION
  Report Type: 
  Country: JP (occurrence: JP)
  Receive Date: 20121012
  Receipt Date: 20121012
  Transmission Date: 20130627
  Serious: Yes (Other)
  Sender: FDA-Public Use
  Company Number: JP-ROXANE LABORATORIES, INC.-2012-RO-01989RO

PATIENT
  Age: 14 Year
  Sex: Female

DRUGS (6)
  1. MIDAZOLAM [Suspect]
     Indication: SEDATION
  2. PREDNISOLONE [Suspect]
     Indication: DRUG RASH WITH EOSINOPHILIA AND SYSTEMIC SYMPTOMS
  3. KETAMINE [Suspect]
     Indication: SEDATION
  4. CLOBAZAM [Suspect]
     Indication: EPILEPSY
  5. VALPROATE SODIUM [Suspect]
     Indication: EPILEPSY
  6. TOPIRAMATE [Suspect]
     Indication: EPILEPSY

REACTIONS (4)
  - Drug reaction with eosinophilia and systemic symptoms [Recovered/Resolved]
  - Hypothyroidism [Recovered/Resolved]
  - Human herpesvirus 6 infection [Unknown]
  - Cytomegalovirus test positive [Unknown]
